FAERS Safety Report 7442668-1 (Version None)
Quarter: 2011Q2

REPORT INFORMATION
  Report Type: 
  Country: None (occurrence: None)
  Receive Date: 20110428
  Receipt Date: 20110414
  Transmission Date: 20111010
  Serious: Yes (Hospitalization)
  Sender: FDA-Public Use
  Company Number: CA-JNJFOC-20110407018

PATIENT
  Sex: Male
  Weight: 92 kg

DRUGS (17)
  1. PENTASA [Concomitant]
     Route: 065
  2. LASIX [Concomitant]
     Route: 065
  3. BISOPROLOL [Concomitant]
     Route: 065
  4. CALCIUM AND VITAMIN D [Concomitant]
     Route: 065
  5. PLAVIX [Concomitant]
     Route: 065
  6. ASPIRIN [Concomitant]
     Route: 065
  7. PRILOSEC [Concomitant]
     Route: 065
  8. SENOKOT [Concomitant]
     Dosage: 1-200
     Route: 065
  9. PREDNISONE [Concomitant]
     Route: 065
  10. NOVORAPID INSULIN [Concomitant]
     Route: 065
  11. GEN-NITRO [Concomitant]
     Route: 065
  12. REMICADE [Suspect]
     Indication: RHEUMATOID ARTHRITIS
     Route: 042
  13. LANTUS [Concomitant]
     Route: 065
  14. COVERSYL [Concomitant]
     Route: 065
  15. REMICADE [Suspect]
     Indication: COLITIS ULCERATIVE
     Route: 042
  16. ARAVA [Concomitant]
     Route: 065
  17. COLACE [Concomitant]
     Route: 065

REACTIONS (4)
  - JOINT INJURY [None]
  - ARTERIAL OCCLUSIVE DISEASE [None]
  - FALL [None]
  - LOSS OF CONSCIOUSNESS [None]
